FAERS Safety Report 9511055 (Version 3)
Quarter: 2013Q4

REPORT INFORMATION
  Report Type: Spontaneous
  Country: AU (occurrence: AU)
  Receive Date: 20130910
  Receipt Date: 20131201
  Transmission Date: 20140711
  Serious: Yes (Hospitalization, Disabling, Other)
  Sender: FDA-Public Use
  Company Number: AU-009507513-1309AUS000639

PATIENT
  Age: 28 Year
  Sex: Female

DRUGS (1)
  1. IMPLANON NXT [Suspect]
     Dosage: UNK
     Route: 059
     Dates: start: 201303, end: 2013

REACTIONS (10)
  - Muscular weakness [Recovered/Resolved with Sequelae]
  - Nerve graft [Unknown]
  - Device deployment issue [Recovered/Resolved with Sequelae]
  - Impaired work ability [Unknown]
  - Monoplegia [Recovered/Resolved with Sequelae]
  - Nerve injury [Recovered/Resolved with Sequelae]
  - Pain in extremity [Recovered/Resolved with Sequelae]
  - Surgery [Unknown]
  - Localised infection [Unknown]
  - Drug administration error [Unknown]
